FAERS Safety Report 6080020-4 (Version None)
Quarter: 2009Q1

REPORT INFORMATION
  Report Type: 
  Country: None (occurrence: None)
  Receive Date: 20090217
  Receipt Date: 20090206
  Transmission Date: 20090719
  Serious: Yes (Other)
  Sender: FDA-Public Use
  Company Number: US-AVENTIS-200911049US

PATIENT
  Age: 56 Year
  Sex: Female

DRUGS (2)
  1. LANTUS [Suspect]
     Dosage: DOSE: 16-20
  2. OPTICLIK (INSULIN INJECTION PEN) [Suspect]
     Dates: start: 20070101

REACTIONS (3)
  - CONDITION AGGRAVATED [None]
  - DIABETIC RETINOPATHY [None]
  - VISUAL ACUITY REDUCED [None]
